FAERS Safety Report 10605732 (Version 1)
Quarter: 2014Q4

REPORT INFORMATION
  Report Type: Spontaneous
  Country: US (occurrence: US)
  Receive Date: 20141125
  Receipt Date: 20141125
  Transmission Date: 20150529
  Serious: No
  Sender: FDA-Public Use
  Company Number: US-ASTRAZENECA-2014SE86958

PATIENT
  Age: 25080 Day
  Sex: Female
  Weight: 81.6 kg

DRUGS (11)
  1. CRESTOR [Suspect]
     Active Substance: ROSUVASTATIN CALCIUM
     Indication: BLOOD CHOLESTEROL ABNORMAL
     Route: 048
     Dates: start: 2004
  2. OVER THE COUNTER ALLERGY RELIEF TABLETS [Concomitant]
     Indication: SLEEP DISORDER
     Route: 048
     Dates: start: 2012
  3. STRESS FORMULA TABLET [Concomitant]
     Indication: STRESS
     Route: 048
     Dates: start: 2012
  4. TRACE MINERAL [Concomitant]
     Indication: SUPPLEMENTATION THERAPY
     Route: 048
     Dates: start: 2012
  5. VALATIAN ROOT EXTRACT [Concomitant]
     Indication: RELAXATION THERAPY
     Route: 048
     Dates: start: 2012
  6. VEGETARIAN MULTIVITAM [Concomitant]
     Indication: SUPPLEMENTATION THERAPY
     Route: 048
     Dates: start: 1972
  7. OMEGA 3 CAPSULES [Concomitant]
     Indication: SUPPLEMENTATION THERAPY
     Route: 048
     Dates: start: 2012
  8. CURVES PROTEIN POWDER [Concomitant]
     Indication: SUPPLEMENTATION THERAPY
     Route: 048
     Dates: start: 2012
  9. CRESTOR [Suspect]
     Active Substance: ROSUVASTATIN CALCIUM
     Indication: BLOOD PRESSURE ABNORMAL
     Route: 048
     Dates: start: 2004
  10. NATURAL ALFALFA [Concomitant]
     Indication: BLOOD CHOLESTEROL DECREASED
     Route: 048
     Dates: start: 2012
  11. CINNAMON TABLETS [Concomitant]
     Indication: SUPPLEMENTATION THERAPY
     Route: 048
     Dates: start: 2012

REACTIONS (3)
  - Blood cholesterol increased [Unknown]
  - Hypertension [Unknown]
  - Blood triglycerides increased [Unknown]

NARRATIVE: CASE EVENT DATE: 20141107
